FAERS Safety Report 12126578 (Version 2)
Quarter: 2016Q1

REPORT INFORMATION
  Report Type: Spontaneous
  Country: FR (occurrence: FR)
  Receive Date: 20160229
  Receipt Date: 20160316
  Transmission Date: 20160526
  Serious: Yes (Hospitalization)
  Sender: FDA-Public Use
  Company Number: FR-PFIZER INC-2016117254

PATIENT
  Age: 57 Year
  Sex: Female

DRUGS (7)
  1. IMOVANE [Suspect]
     Active Substance: ZOPICLONE
     Dosage: 15 MG (7.5 MG X2), 1X/DAY
     Dates: end: 201507
  2. IMOVANE [Suspect]
     Active Substance: ZOPICLONE
     Dosage: AT LEAST 22.5 MG, SINGLE
     Route: 048
     Dates: start: 201507, end: 201507
  3. DEPAKOTE [Concomitant]
     Active Substance: DIVALPROEX SODIUM
     Dosage: 250 MG, 3X/DAY
  4. PAROXETINE [Concomitant]
     Active Substance: PAROXETINE\PAROXETINE HYDROCHLORIDE
     Dosage: 20 MG AT 0.5 DF IN THE MORNING
  5. XANAX [Suspect]
     Active Substance: ALPRAZOLAM
     Dosage: 0.5 MG, 3X/DAY
     Dates: end: 201507
  6. LANTUS [Concomitant]
     Active Substance: INSULIN GLARGINE
     Dosage: 80 IU, DAILY
  7. XANAX [Suspect]
     Active Substance: ALPRAZOLAM
     Dosage: AT LEAST 15 MG, SINGLE
     Route: 048
     Dates: start: 201507, end: 201507

REACTIONS (4)
  - Psychomotor retardation [Recovered/Resolved]
  - Intentional overdose [Unknown]
  - Toxicity to various agents [Unknown]
  - Poisoning deliberate [Unknown]

NARRATIVE: CASE EVENT DATE: 20150717
